FAERS Safety Report 6807271-2 (Version None)
Quarter: 2010Q2

REPORT INFORMATION
  Report Type: 
  Country: None (occurrence: None)
  Receive Date: 20100629
  Receipt Date: 20080818
  Transmission Date: 20101027
  Serious: Yes (Other)
  Sender: FDA-Public Use
  Company Number: US-PFIZER INC-2008063747

PATIENT
  Sex: Male
  Weight: 69.09 kg

DRUGS (3)
  1. VIAGRA [Suspect]
     Indication: ERECTILE DYSFUNCTION
     Route: 048
     Dates: start: 20050101
  2. VIAGRA [Suspect]
     Indication: PROSTATE CANCER
  3. LEVITRA [Concomitant]

REACTIONS (1)
  - DEAFNESS [None]
